FAERS Safety Report 15651582 (Version 2)
Quarter: 2018Q4

REPORT INFORMATION
  Report Type: Report from Study
  Country: NL (occurrence: NL)
  Receive Date: 20181123
  Receipt Date: 20181210
  Transmission Date: 20190205
  Serious: Yes (Other)
  Sender: FDA-Public Use
  Company Number: NL-IPSEN BIOPHARMACEUTICALS, INC.-2018-17408

PATIENT
  Age: 74 Year
  Sex: Male

DRUGS (1)
  1. SOMATULINE AUTOSOLUTION 120MG [Suspect]
     Active Substance: LANREOTIDE ACETATE
     Indication: NEUROENDOCRINE TUMOUR
     Dosage: IN A PRE-FILLED SYRINGE
     Route: 058
     Dates: start: 20180626

REACTIONS (3)
  - Pneumonia [Unknown]
  - Cough [Unknown]
  - Back disorder [Unknown]

NARRATIVE: CASE EVENT DATE: 20181102
